FAERS Safety Report 4286409-8 (Version None)
Quarter: 2004Q1

REPORT INFORMATION
  Report Type: 
  Country: None (occurrence: None)
  Receive Date: 20040126
  Receipt Date: 20021223
  Transmission Date: 20041129
  Serious: No
  Sender: FDA-Public Use
  Company Number: 02P-163-0203669-00

PATIENT
  Age: 71 Year
  Sex: Male

DRUGS (9)
  1. HYTRIN [Suspect]
     Dosage: 5 MG, 1 IN 1 D, ORAL
     Route: 048
     Dates: start: 20021001, end: 20021003
  2. HYTRIN [Suspect]
     Dosage: 5 MG, 1 IN 1 D, ORAL
     Route: 048
     Dates: start: 20021004, end: 20021006
  3. HYTRIN [Suspect]
     Dosage: 5 MG, 1 IN 1 D, ORAL
     Route: 048
     Dates: start: 20021007, end: 20021010
  4. HYTRIN [Suspect]
     Dosage: 5 MG, 1 IN 1 D, ORAL
     Route: 048
     Dates: start: 20021011, end: 20021021
  5. HYTRIN [Suspect]
     Dosage: 5 MG, 1 IN 1 D, ORAL
     Route: 048
     Dates: start: 20021022, end: 20021022
  6. VARDENAFIL [Suspect]
     Dosage: 10 MG, 1 IN 1 D, PER ORAL
     Route: 048
     Dates: start: 20021015, end: 20021015
  7. VARDENAFIL [Suspect]
     Dosage: 10 MG, 1 IN 1 D, PER ORAL
     Route: 048
     Dates: start: 20021019, end: 20021019
  8. VARDENAFIL [Suspect]
     Dosage: 10 MG, 1 IN 1 D, PER ORAL
     Route: 048
     Dates: start: 20021022, end: 20021022
  9. PLACEBO [Suspect]
     Dosage: ORAL
     Route: 048
     Dates: start: 20021017, end: 20021017

REACTIONS (1)
  - HYPOTENSION [None]
